FAERS Safety Report 4653979-7 (Version None)
Quarter: 2005Q2

REPORT INFORMATION
  Report Type: 
  Country: None (occurrence: None)
  Receive Date: 20050404
  Receipt Date: 20041130
  Transmission Date: 20051028
  Serious: No
  Sender: FDA-Public Use
  Company Number: USA041284944

PATIENT
  Age: 52 Year
  Sex: Female
  Weight: 55 kg

DRUGS (7)
  1. CYMBALTA [Suspect]
     Indication: DEPRESSION
     Dosage: 30 MG DAY
     Dates: start: 20040903, end: 20040903
  2. STRATTERA [Suspect]
     Indication: ATTENTION DEFICIT/HYPERACTIVITY DISORDER
     Dosage: 18 MG DAY
  3. PROZAC [Suspect]
     Indication: DEPRESSION
     Dosage: 100 MG DAY
     Dates: start: 19870101
  4. COZAAR [Concomitant]
  5. SYNTHROID [Concomitant]
  6. PROVIGIL [Concomitant]
  7. NEXIUM [Concomitant]

REACTIONS (3)
  - BLOOD PRESSURE INCREASED [None]
  - HEART RATE INCREASED [None]
  - PRESCRIBED OVERDOSE [None]
